FAERS Safety Report 4621736-3 (Version None)
Quarter: 2005Q1

REPORT INFORMATION
  Report Type: 
  Country: None (occurrence: None)
  Receive Date: 20050329
  Receipt Date: 20050318
  Transmission Date: 20050727
  Serious: Yes (Other)
  Sender: FDA-Public Use
  Company Number: JP-MERCK-0503USA04528

PATIENT
  Age: 30 Year
  Sex: Female
  Weight: 45 kg

DRUGS (10)
  1. PEPCID [Suspect]
     Indication: PREMEDICATION
     Route: 042
  2. CANDESARTAN [Concomitant]
     Route: 048
  3. ASPIRIN [Concomitant]
     Route: 048
  4. DIAZEPAM [Concomitant]
     Indication: PREMEDICATION
     Route: 042
  5. THIOPENTAL SODIUM [Concomitant]
     Indication: ANAESTHESIA
     Route: 065
  6. FENTANYL [Concomitant]
     Indication: ANAESTHESIA
     Route: 065
  7. VECURONIUM BROMIDE [Concomitant]
     Indication: INTUBATION
     Route: 065
  8. OXYGEN [Concomitant]
     Indication: ANAESTHESIA
     Route: 065
  9. NITROUS OXIDE [Concomitant]
     Indication: ANAESTHESIA
     Route: 065
  10. ISOFLURANE [Concomitant]
     Route: 065

REACTIONS (7)
  - APHASIA [None]
  - BLOOD PRESSURE SYSTOLIC INCREASED [None]
  - BRAIN OEDEMA [None]
  - EXTRADURAL HAEMATOMA [None]
  - HEMIPLEGIA [None]
  - POST PROCEDURAL COMPLICATION [None]
  - PROCEDURAL COMPLICATION [None]
